FAERS Safety Report 23824708 (Version 2)
Quarter: 2024Q2

REPORT INFORMATION
  Report Type: Spontaneous
  Country: CA (occurrence: None)
  Receive Date: 20240507
  Receipt Date: 20240522
  Transmission Date: 20240716
  Serious: Yes (Other)
  Sender: FDA-Public Use
  Company Number: CA-PFIZER INC-202400100322

PATIENT
  Age: 56 Year
  Sex: Female

DRUGS (6)
  1. METHOTREXATE [Suspect]
     Active Substance: METHOTREXATE
     Indication: Crohn^s disease
     Dates: start: 202303
  2. ENTOCORT [Concomitant]
     Active Substance: BUDESONIDE
     Dosage: ONGOING
     Dates: start: 202403
  3. FOLIC ACID [Concomitant]
     Active Substance: FOLIC ACID
     Dosage: ONGOING
  4. PREDNISONE [Concomitant]
     Active Substance: PREDNISONE
     Dates: end: 202304
  5. MESALAMINE [Concomitant]
     Active Substance: MESALAMINE
     Dosage: ONGOING
     Dates: start: 20240405
  6. INFLECTRA [Concomitant]
     Active Substance: INFLIXIMAB-DYYB
     Indication: Crohn^s disease
     Dosage: INDUCTION W0,2, THEN Q 8 WEEKS, ONGOING
     Dates: start: 20240515

REACTIONS (8)
  - Uveitis [Unknown]
  - Drug ineffective for unapproved indication [Unknown]
  - Product use in unapproved indication [Unknown]
  - Crohn^s disease [Not Recovered/Not Resolved]
  - Arthralgia [Unknown]
  - Erythema nodosum [Unknown]
  - Aphthous ulcer [Unknown]
  - Sleep disorder [Unknown]
